FAERS Safety Report 7722178-4 (Version None)
Quarter: 2011Q3

REPORT INFORMATION
  Report Type: 
  Country: None (occurrence: None)
  Receive Date: 20110831
  Receipt Date: 20110826
  Transmission Date: 20111222
  Serious: Yes (Hospitalization, Other)
  Sender: FDA-Public Use
  Company Number: CA-ABBOTT-11P-028-0849221-00

PATIENT
  Sex: Female
  Weight: 86.26 kg

DRUGS (5)
  1. SYNTHROID [Concomitant]
     Indication: THYROID DISORDER
     Route: 048
     Dates: start: 20090101
  2. TRIQUILAR [Concomitant]
     Indication: CONTRACEPTION
     Route: 048
     Dates: start: 20100101
  3. VENLAFAXINE [Concomitant]
     Indication: DEPRESSION
     Route: 048
     Dates: start: 20090101
  4. ELAVIL [Concomitant]
     Indication: DEPRESSION
     Route: 048
     Dates: start: 20060101
  5. HUMIRA [Suspect]
     Indication: CROHN'S DISEASE
     Route: 058
     Dates: start: 20090921

REACTIONS (3)
  - INTESTINAL OBSTRUCTION [None]
  - NEURALGIA [None]
  - FISTULA [None]
